FAERS Safety Report 5536101-4 (Version None)
Quarter: 2007Q4

REPORT INFORMATION
  Report Type: 
  Country: None (occurrence: None)
  Receive Date: 20071204
  Receipt Date: 20071120
  Transmission Date: 20080405
  Serious: Yes (Hospitalization, Other)
  Sender: FDA-Public Use
  Company Number: 2003-04811

PATIENT
  Age: 79 Year
  Sex: Male
  Weight: 71.2 kg

DRUGS (9)
  1. ALTOPREV [Suspect]
     Indication: HYPERLIPIDAEMIA
     Dosage: 60 MG, DAILY, ORAL
     Route: 048
     Dates: start: 20021201, end: 20030902
  2. VERAPAMIL [Concomitant]
  3. NEXIUM [Concomitant]
  4. FLOMAX [Concomitant]
  5. CELEBREX [Concomitant]
  6. ASPIRIN [Concomitant]
  7. QUININE SULFATE [Concomitant]
  8. LUMIGAN [Concomitant]
  9. CALCIUM [Concomitant]

REACTIONS (13)
  - ALANINE AMINOTRANSFERASE INCREASED [None]
  - ASPARTATE AMINOTRANSFERASE INCREASED [None]
  - ATRIAL FIBRILLATION [None]
  - BILIRUBIN CONJUGATED INCREASED [None]
  - BLOOD ALKALINE PHOSPHATASE INCREASED [None]
  - BLOOD BILIRUBIN INCREASED [None]
  - BLOOD CREATINE PHOSPHOKINASE MB INCREASED [None]
  - CHOLECYSTITIS [None]
  - CHROMATURIA [None]
  - GAMMA-GLUTAMYLTRANSFERASE INCREASED [None]
  - HYPERTENSION [None]
  - MYALGIA [None]
  - RHABDOMYOLYSIS [None]
